FAERS Safety Report 4407982-2 (Version None)
Quarter: 2004Q3

REPORT INFORMATION
  Report Type: 
  Country: None (occurrence: None)
  Receive Date: 20040722
  Receipt Date: 20040423
  Transmission Date: 20050211
  Serious: Yes (Hospitalization)
  Sender: FDA-Public Use
  Company Number: 2002-BL-00047BL(2)

PATIENT
  Age: 26 Year
  Sex: Female

DRUGS (6)
  1. VIRAMUNE [Suspect]
     Indication: HIV INFECTION
     Dosage: SEE IMAGE
     Route: 048
     Dates: start: 20010522, end: 20010604
  2. VIRAMUNE [Suspect]
     Indication: HIV INFECTION
     Dosage: SEE IMAGE
     Route: 048
     Dates: start: 20010605, end: 20020325
  3. STAVUDINE (STAVUDINE) (KA) [Suspect]
     Indication: HIV INFECTION
     Dosage: DOSAGE ERROR; PO
     Route: 048
     Dates: start: 20010522, end: 20010604
  4. STAVUDINE (STAVUDINE) (KA) [Suspect]
     Indication: HIV INFECTION
     Dosage: DOSAGE ERROR; PO
     Route: 048
     Dates: start: 20010605, end: 20020325
  5. LAMIVUDINE (LAMIVUDINE )(TA) [Concomitant]
  6. LEVONORGESTREL +ESTRADIOL(EUGYNON) [Concomitant]

REACTIONS (1)
  - GASTRITIS [None]
